FAERS Safety Report 6838135-6 (Version None)
Quarter: 2010Q3

REPORT INFORMATION
  Report Type: 
  Country: None (occurrence: None)
  Receive Date: 20100713
  Receipt Date: 20070601
  Transmission Date: 20110219
  Serious: No
  Sender: FDA-Public Use
  Company Number: US-PFIZER INC-2007046169

PATIENT
  Sex: Male
  Weight: 79.5 kg

DRUGS (2)
  1. CHANTIX [Suspect]
     Indication: SMOKING CESSATION THERAPY
     Dates: start: 20070501, end: 20070501
  2. IBUPROFEN [Concomitant]

REACTIONS (6)
  - ASTHENOPIA [None]
  - EYE PAIN [None]
  - HEADACHE [None]
  - INSOMNIA [None]
  - PHOTOPHOBIA [None]
  - VISION BLURRED [None]
